FAERS Safety Report 23907515 (Version 2)
Quarter: 2024Q3

REPORT INFORMATION
  Report Type: Report from Study
  Country: CA (occurrence: CA)
  Receive Date: 20240528
  Receipt Date: 20240705
  Transmission Date: 20241017
  Serious: Yes (Other)
  Sender: SANDOZ
  Company Number: CA-002147023-NVSC2022CA133692

PATIENT
  Sex: Male

DRUGS (1)
  1. HYRIMOZ [Suspect]
     Active Substance: ADALIMUMAB-ADAZ
     Indication: Psoriatic arthropathy
     Dosage: 40 MG EVERY TWO WEEKS
     Route: 058
     Dates: start: 20220517

REACTIONS (4)
  - Arthropathy [Unknown]
  - Injection site pain [Unknown]
  - Drug ineffective [Unknown]
  - Product dose omission issue [Unknown]
